FAERS Safety Report 10472559 (Version 2)
Quarter: 2014Q4

REPORT INFORMATION
  Report Type: Other
  Country: US (occurrence: US)
  Receive Date: 20140924
  Receipt Date: 20141017
  Transmission Date: 20150528
  Serious: Yes (Other)
  Sender: FDA-Public Use
  Company Number: US-SHIRE-US201406060

PATIENT
  Age: 39 Year
  Sex: Male

DRUGS (2)
  1. CINRYZE [Suspect]
     Active Substance: HUMAN C1-ESTERASE INHIBITOR
     Indication: PROPHYLAXIS
     Dosage: OTHER, 1000 UNITS EVERY THREE DAYS
     Route: 042
     Dates: start: 20140331, end: 2014
  2. CINRYZE [Suspect]
     Active Substance: HUMAN C1-ESTERASE INHIBITOR
     Indication: HEREDITARY ANGIOEDEMA
     Dosage: 1500 UNITS, OTHER (EVERY 3 DAYS)
     Route: 042
     Dates: start: 2014

REACTIONS (3)
  - Pharyngeal oedema [Unknown]
  - Hereditary angioedema [Unknown]
  - Prescribed overdose [Not Recovered/Not Resolved]

NARRATIVE: CASE EVENT DATE: 2014
